FAERS Safety Report 19827864 (Version 2)
Quarter: 2021Q3

REPORT INFORMATION
  Report Type: Spontaneous
  Country: US (occurrence: US)
  Receive Date: 20210914
  Receipt Date: 20210915
  Transmission Date: 20211014
  Serious: Yes (Other)
  Sender: FDA-Public Use
  Company Number: US-PFIZER INC-202101154273

PATIENT
  Age: 71 Year
  Sex: Female
  Weight: 72.12 kg

DRUGS (2)
  1. IBRANCE [Suspect]
     Active Substance: PALBOCICLIB
     Indication: BREAST CANCER METASTATIC
     Dosage: 100 MG, DAILY (1 TABLET BY MOUTH ONCE DAILY AT NIGHT)
     Route: 048
     Dates: start: 2019
  2. LETROZOLE. [Concomitant]
     Active Substance: LETROZOLE
     Dosage: 2.5 MG, DAILY (1 TABLET BY MOUTH ONCE DAILY AT NIGHT)
     Route: 048
     Dates: start: 2019

REACTIONS (4)
  - Weight decreased [Not Recovered/Not Resolved]
  - Feeling abnormal [Not Recovered/Not Resolved]
  - Arthritis [Unknown]
  - Thrombosis [Unknown]

NARRATIVE: CASE EVENT DATE: 202103
